FAERS Safety Report 4444683-9 (Version None)
Quarter: 2004Q3

REPORT INFORMATION
  Report Type: 
  Country: None (occurrence: None)
  Receive Date: 20040902
  Receipt Date: 20040816
  Transmission Date: 20050211
  Serious: Yes (Other)
  Sender: FDA-Public Use
  Company Number: USA040670674

PATIENT
  Age: 59 Year
  Sex: Male
  Weight: 91 kg

DRUGS (6)
  1. ALIMTA [Suspect]
     Indication: MESOTHELIOMA
     Dosage: 1000 MG
     Dates: start: 20040415, end: 20040722
  2. GEMZAR [Suspect]
     Indication: MESOTHELIOMA
     Dosage: 2000 MG
     Dates: start: 20040122, end: 20040323
  3. VITAMIN B-12 [Concomitant]
  4. FOOIC ACID [Concomitant]
  5. MANNITOL [Concomitant]
  6. DEXAMETHASONE [Concomitant]

REACTIONS (7)
  - BLOOD CREATININE INCREASED [None]
  - BLOOD UREA INCREASED [None]
  - HAEMATOCRIT DECREASED [None]
  - HAEMATURIA [None]
  - HAEMOGLOBIN DECREASED [None]
  - PLATELET COUNT DECREASED [None]
  - WHITE BLOOD CELL COUNT DECREASED [None]
